FAERS Safety Report 16837680 (Version 1)
Quarter: 2019Q3

REPORT INFORMATION
  Report Type: Spontaneous
  Country: US (occurrence: US)
  Receive Date: 20190923
  Receipt Date: 20190923
  Transmission Date: 20191005
  Serious: No
  Sender: FDA-Public Use
  Company Number: US-GLAXOSMITHKLINE-US2019168162

PATIENT
  Sex: Female

DRUGS (2)
  1. FLOVENT [Suspect]
     Active Substance: FLUTICASONE PROPIONATE
     Indication: WHEEZING
     Dosage: 1 PUFF(S), BID
     Dates: start: 2017
  2. FLOVENT [Suspect]
     Active Substance: FLUTICASONE PROPIONATE
     Indication: ASTHMA

REACTIONS (4)
  - Wrong technique in device usage process [Unknown]
  - Product dose omission [Unknown]
  - Cough [Unknown]
  - Extra dose administered [Unknown]

NARRATIVE: CASE EVENT DATE: 2019
